FAERS Safety Report 4932409-1 (Version None)
Quarter: 2006Q1

REPORT INFORMATION
  Report Type: 
  Country: None (occurrence: None)
  Receive Date: 20060301
  Receipt Date: 20060217
  Transmission Date: 20060701
  Serious: Yes (Death)
  Sender: FDA-Public Use
  Company Number: 2004217584NO

PATIENT
  Age: 65 Year
  Sex: Male

DRUGS (9)
  1. FRAGMIN [Suspect]
     Indication: DEEP VEIN THROMBOSIS
     Dosage: 20000 I.U. (10000 I.U., 2 IN 1 D), SUBCUTANEOUS
     Route: 058
     Dates: start: 20040314, end: 20040317
  2. WARFARIN SODIUM [Suspect]
     Indication: DEEP VEIN THROMBOSIS
     Dosage: ORAL
     Route: 048
     Dates: start: 20040314, end: 20040317
  3. SEROXAT  SK+F  (PAROXETINE HYDROCHLORIDE) [Concomitant]
  4. FUNGIZONE [Concomitant]
  5. ZOPICLONE (ZOPICLONE) [Concomitant]
  6. PARACET (PARACETAMOL) [Concomitant]
  7. KETOBEMIDONE (KETOBEMIDONE) [Concomitant]
  8. DEXAMETHASONE [Concomitant]
  9. SOBRIL (OXAZEPAM) [Concomitant]

REACTIONS (2)
  - CEREBRAL HAEMORRHAGE [None]
  - HEMIPARESIS [None]
